FAERS Safety Report 4706624-6 (Version None)
Quarter: 2005Q3

REPORT INFORMATION
  Report Type: 
  Country: None (occurrence: None)
  Receive Date: 20050705
  Receipt Date: 20050517
  Transmission Date: 20060218
  Serious: Yes (Life-Threatening, Hospitalization)
  Sender: FDA-Public Use
  Company Number: DE-ROCHE-404999

PATIENT
  Age: 50 Year
  Sex: Female

DRUGS (54)
  1. VALCYTE [Suspect]
     Indication: DRUG USE FOR UNKNOWN INDICATION
     Route: 065
  2. MYCOPHENOLATE MOFETIL [Suspect]
     Route: 042
     Dates: start: 20050406, end: 20050411
  3. MYCOPHENOLATE MOFETIL [Suspect]
     Route: 048
     Dates: start: 20050412
  4. MYCOPHENOLATE MOFETIL [Suspect]
     Dosage: DOSE LOWERED DUE TO NEUTROPENIA AND PNEUMONIA.
     Route: 048
  5. TACROLIMUS [Suspect]
     Dosage: ADJUSTED TO REACH PREDEFINED TARGET LEVELS
     Route: 048
     Dates: start: 20050407, end: 20050420
  6. TACROLIMUS [Suspect]
     Dosage: TREATMENT OF REJECTION
     Route: 048
     Dates: start: 20050421, end: 20050427
  7. TACROLIMUS [Suspect]
     Dosage: ADJUSTED TO REACH PREDEFINED TARGET LEVELS
     Route: 048
     Dates: start: 20050428, end: 20050430
  8. TACROLIMUS [Suspect]
     Dosage: TREATMENT OF REJECTION
     Route: 048
     Dates: start: 20050501
  9. METHYLPREDNISOLONE [Suspect]
     Route: 065
     Dates: start: 20050406, end: 20050406
  10. METHYLPREDNISOLONE [Suspect]
     Dosage: TREATMENT OF REJECTION
     Route: 065
     Dates: start: 20050421, end: 20050423
  11. PREDNISONE [Suspect]
     Dosage: TAPERED ACCORDING TO LOCAL PROTOCOL
     Route: 065
     Dates: start: 20050407
  12. CARBAMAZEPINE [Suspect]
     Route: 065
  13. ACETYLCYSTEINE [Concomitant]
     Dates: start: 20050412
  14. TPN ELECTROLYTES IN PLASTIC CONTAINER [Concomitant]
     Dates: start: 20050408, end: 20050410
  15. ANTITHROMBIN III [Concomitant]
     Dates: start: 20050406, end: 20050411
  16. HEPARIN [Concomitant]
     Indication: HAEMORRHAGE
     Dates: start: 20050409, end: 20050412
  17. TRIMETHOPRIM/SULFAMETHOXAZOLE DS [Concomitant]
     Dates: start: 20050408, end: 20050503
  18. BIFITERAL [Concomitant]
     Dates: start: 20050414, end: 20050422
  19. CERNEVIT-12 [Concomitant]
     Dates: start: 20050408, end: 20050410
  20. CIPROFLOXACIN [Concomitant]
     Dates: start: 20050418, end: 20050426
  21. CEFOTAXIM [Concomitant]
     Indication: INFECTION PROPHYLAXIS
     Dates: start: 20050406, end: 20050412
  22. METRONIDAZOLE [Concomitant]
     Indication: INFECTION PROPHYLAXIS
     Dates: start: 20050406, end: 20050412
  23. GANCICLOVIR [Concomitant]
     Indication: INFECTION PROPHYLAXIS
     Dates: start: 20050406, end: 20050410
  24. L-ALANYL-L-GLUTAMIN [Concomitant]
     Dates: start: 20050406, end: 20050408
  25. PIRITRAMID [Concomitant]
     Dates: start: 20050406, end: 20050425
  26. PROPOFOL [Concomitant]
     Dates: start: 20050406, end: 20050407
  27. NADROPARIN [Concomitant]
     Indication: THROMBOSIS PROPHYLAXIS
     Dates: start: 20050412
  28. ALBUMIN (HUMAN) [Concomitant]
     Dates: start: 20050409, end: 20050417
  29. HYDROCHLOROTHIAZID [Concomitant]
     Dates: start: 20050423, end: 20050426
  30. INSULIN [Concomitant]
     Dates: start: 20050406, end: 20050407
  31. PHYTOMENADION [Concomitant]
     Dates: start: 20050408, end: 20050408
  32. FUROSEMIDE [Concomitant]
     Dates: start: 20050406, end: 20050428
  33. MANNITOL [Concomitant]
     Dates: start: 20050407, end: 20050407
  34. MAGNESIUM [Concomitant]
     Dates: start: 20050406, end: 20050406
  35. NYSTATIN [Concomitant]
     Indication: ANTIFUNGAL PROPHYLAXIS
     Dates: start: 20050406, end: 20050410
  36. AMBROXOL [Concomitant]
     Dates: start: 20050406, end: 20050411
  37. NACL [Concomitant]
     Dates: start: 20050409, end: 20050428
  38. NORMOFUNDIN [Concomitant]
     Indication: PARENTERAL NUTRITION
     Dates: start: 20050406, end: 20050409
  39. METAMIZOL [Concomitant]
     Dates: start: 20050406, end: 20050501
  40. PYRIDOXINE + THIAMINE [Concomitant]
     Indication: VITAMIN B COMPLEX DEFICIENCY
     Dates: start: 20050412
  41. SODIUM PHOSPHATE [Concomitant]
     Dates: start: 20050408, end: 20050408
  42. FUROSEMIDE/SPIRONOLACTONE [Concomitant]
     Dates: start: 20050407, end: 20050409
  43. PANTOPRAZOL [Concomitant]
     Dates: start: 20050406
  44. CLONIDIN [Concomitant]
     Dates: start: 20050406, end: 20050430
  45. RINGER'S INJECTION [Concomitant]
     Dates: start: 20050406, end: 20050429
  46. TRAMADOL HCL [Concomitant]
     Dates: start: 20050428, end: 20050502
  47. APROTININ [Concomitant]
     Indication: HAEMORRHAGE
     Dates: start: 20050406, end: 20050406
  48. MUPIROCIN [Concomitant]
     Indication: ANTIBIOTIC PROPHYLAXIS
     Dates: start: 20050408, end: 20050411
  49. TORSEMIDE [Concomitant]
     Dates: start: 20050412, end: 20050426
  50. URSODEOXYCHOLIC ACID [Concomitant]
     Dates: start: 20050419
  51. VANCOMYCIN [Concomitant]
     Dates: start: 20050426, end: 20050502
  52. VALGANCICLOVIR [Concomitant]
     Indication: INFECTION PROPHYLAXIS
     Dates: start: 20050412
  53. ZOLPIDEM TARTRATE [Concomitant]
     Indication: SLEEP DISORDER
     Dates: start: 20050413, end: 20050422
  54. IMIPENEM/CILASTATIN SODIUM [Concomitant]
     Indication: INFECTION
     Dates: start: 20050426, end: 20050502

REACTIONS (14)
  - ALANINE AMINOTRANSFERASE INCREASED [None]
  - ASPARTATE AMINOTRANSFERASE ABNORMAL [None]
  - BLOOD CREATININE ABNORMAL [None]
  - BLOOD CREATININE INCREASED [None]
  - BLOOD UREA ABNORMAL [None]
  - CONVULSION [None]
  - FALL [None]
  - HEAD INJURY [None]
  - HEMIANOPIA [None]
  - HEMIPARESIS [None]
  - NEUTROPENIA [None]
  - PNEUMONIA [None]
  - SUBDURAL HAEMATOMA [None]
  - SYNCOPE [None]
